FAERS Safety Report 5523727-7 (Version None)
Quarter: 2007Q4

REPORT INFORMATION
  Report Type: 
  Country: None (occurrence: None)
  Receive Date: 20071121
  Receipt Date: 20071114
  Transmission Date: 20080405
  Serious: Yes (Hospitalization)
  Sender: FDA-Public Use
  Company Number: US-BAXTER-2007BH008729

PATIENT
  Age: 81 Year
  Sex: Female

DRUGS (4)
  1. DIANEAL [Suspect]
     Indication: RENAL FAILURE CHRONIC
     Dosage: DOSE UNIT:UNKNOWN
     Route: 033
     Dates: start: 20031230
  2. DIANEAL [Suspect]
     Indication: RENAL FAILURE CHRONIC
     Dosage: DOSE UNIT:UNKNOWN
     Route: 033
     Dates: start: 20031230
  3. EXTRANEAL [Suspect]
     Indication: RENAL FAILURE CHRONIC
     Dosage: DOSE UNIT:UNKNOWN
     Route: 033
     Dates: start: 20060315, end: 20071019
  4. CIPRO [Suspect]
     Indication: PERITONITIS BACTERIAL
     Route: 048
     Dates: start: 20071012, end: 20071015

REACTIONS (3)
  - EXFOLIATIVE RASH [None]
  - PERITONITIS BACTERIAL [None]
  - SENSORY DISTURBANCE [None]
